FAERS Safety Report 24749546 (Version 1)
Quarter: 2024Q4

REPORT INFORMATION
  Report Type: Spontaneous
  Country: CN (occurrence: CN)
  Receive Date: 20241218
  Receipt Date: 20241218
  Transmission Date: 20250114
  Serious: Yes (Hospitalization)
  Sender: MYLAN
  Company Number: CN-MYLANLABS-2024M1113284

PATIENT
  Age: 80 Year
  Sex: Female

DRUGS (8)
  1. AMLODIPINE [Suspect]
     Active Substance: AMLODIPINE BESYLATE
     Indication: Hypertension
     Dosage: 10 MILLIGRAM, QD (ONCE DAILY)
     Route: 048
     Dates: start: 2018, end: 20240919
  2. AMLODIPINE [Suspect]
     Active Substance: AMLODIPINE BESYLATE
     Dosage: 5 MILLIGRAM, QD (ONCE A DAY)
     Route: 048
     Dates: start: 20240920, end: 202409
  3. AMLODIPINE [Suspect]
     Active Substance: AMLODIPINE BESYLATE
     Dosage: 20 MILLIGRAM, QD (ONCE A DAY)
     Route: 048
     Dates: start: 202409, end: 20241111
  4. BAN 2401 [Concomitant]
     Indication: Dementia Alzheimer^s type
     Dosage: 10 MILLIGRAM/KILOGRAM OR PLACEBO INTRAVENOUS INFUSION, Q2W (EVERY 2 WEEKS)
     Route: 042
     Dates: start: 20210611, end: 20221229
  5. BAN 2401 [Concomitant]
     Dosage: 10 MILLIGRAM/KILOGRAM, Q2W (EVERY 2 WEEKS)
     Route: 042
     Dates: start: 20230119
  6. ATORVASTATIN CALCIUM [Concomitant]
     Active Substance: ATORVASTATIN CALCIUM
     Dosage: UNK
     Route: 065
  7. GINKO BILOBA [Concomitant]
     Active Substance: GINKGO
     Dosage: UNK
     Route: 065
  8. ASPIRIN [Concomitant]
     Active Substance: ASPIRIN
     Dosage: UNK
     Route: 065

REACTIONS (5)
  - Vertigo CNS origin [Recovered/Resolved]
  - Hypotension [Unknown]
  - Blood albumin decreased [Unknown]
  - Blood cholesterol increased [Unknown]
  - Low density lipoprotein increased [Unknown]

NARRATIVE: CASE EVENT DATE: 20241012
